FAERS Safety Report 4886448-X (Version None)
Quarter: 2006Q1

REPORT INFORMATION
  Report Type: 
  Country: None (occurrence: None)
  Receive Date: 20060118
  Receipt Date: 20051123
  Transmission Date: 20060701
  Serious: Yes (Hospitalization, Disabling, Other)
  Sender: FDA-Public Use
  Company Number: US200511001238

PATIENT
  Age: 52 Year
  Sex: Female

DRUGS (2)
  1. FORTEO [Suspect]
     Dosage: 20 UG,
     Dates: start: 20041101
  2. FORTEO [Concomitant]

REACTIONS (5)
  - BACK PAIN [None]
  - BEDRIDDEN [None]
  - BONE PAIN [None]
  - MOBILITY DECREASED [None]
  - NEURILEMMOMA MALIGNANT [None]
